FAERS Safety Report 20355481 (Version 1)
Quarter: 2022Q1

REPORT INFORMATION
  Report Type: Spontaneous
  Country: US (occurrence: None)
  Receive Date: 20220119
  Receipt Date: 20220119
  Transmission Date: 20220423
  Serious: Yes (Hospitalization)
  Sender: FDA-Public Use
  Company Number: None

PATIENT
  Age: 71 Year
  Sex: Male

DRUGS (20)
  1. SOTROVIMAB [Suspect]
     Active Substance: SOTROVIMAB
     Indication: COVID-19
     Dosage: FREQUENCY : ONCE;?
     Route: 042
     Dates: start: 20220113, end: 20220113
  2. ALBUTEROL [Concomitant]
     Active Substance: ALBUTEROL
  3. ALPRAZolam (Xanax) [Concomitant]
  4. ascorbic acid, vitamin C [Concomitant]
  5. azithromycin (ZITHROMAX) [Concomitant]
  6. budesonide (PULMICORT) [Concomitant]
  7. cholecalciferol, vitamin D3 [Concomitant]
  8. cyanocobalamin (VITAMIN B-12) [Concomitant]
  9. docusate sodium (COLACE) [Concomitant]
  10. ezetimibe (ZETIA) [Concomitant]
  11. formoterol (PERFOROMIST) [Concomitant]
  12. GRAPE SEED EXTRACT [Concomitant]
  13. ATROVENT [Concomitant]
  14. L.acidophilus-L.rhamnosis (Probiotic) [Concomitant]
  15. SYNTHROID [Concomitant]
  16. MONTELUKAST [Concomitant]
  17. MORPHINE [Concomitant]
  18. primidone (mysoline) [Concomitant]
  19. sertraline (zoloft) [Concomitant]
  20. Vitamin E [Concomitant]

REACTIONS (4)
  - Depression [None]
  - Nausea [None]
  - Chronic obstructive pulmonary disease [None]
  - Essential tremor [None]

NARRATIVE: CASE EVENT DATE: 20220113
